FAERS Safety Report 7122953-3 (Version None)
Quarter: 2010Q4

REPORT INFORMATION
  Report Type: 
  Country: None (occurrence: None)
  Receive Date: 20101124
  Receipt Date: 20101121
  Transmission Date: 20110411
  Serious: Yes (Other)
  Sender: FDA-Public Use
  Company Number: JP-ABBOTT-10P-087-0653455-00

PATIENT
  Sex: Female
  Weight: 41.7 kg

DRUGS (8)
  1. HUMIRA [Suspect]
     Indication: RHEUMATOID ARTHRITIS
     Route: 058
     Dates: start: 20091204
  2. ALENDRONATE SODIUM HYDRATE [Suspect]
     Indication: OSTEOPOROSIS
     Dosage: 35 MG/W
     Route: 048
  3. LOXOPROFEN SODIUM HYDRATE [Concomitant]
     Indication: RHEUMATOID ARTHRITIS
     Dosage: 180 MG DAILY
  4. ZOPICLONE [Concomitant]
     Indication: INSOMNIA
     Dosage: 7.5 MG DAILY
  5. PRAVASTATIN SODIUM [Concomitant]
     Indication: HYPERLIPIDAEMIA
     Dosage: 10 MG DAILY
  6. LANSOPRAZOLE [Concomitant]
     Indication: GASTRIC ULCER
     Dosage: 15 MG DAILY
  7. PREDNISOLONE [Concomitant]
     Indication: RHEUMATOID ARTHRITIS
  8. REBAMIPIDE [Concomitant]
     Indication: PRODUCT USED FOR UNKNOWN INDICATION

REACTIONS (4)
  - FEMORAL NECK FRACTURE [None]
  - FIBULA FRACTURE [None]
  - GAIT DISTURBANCE [None]
  - TIBIA FRACTURE [None]
